FAERS Safety Report 17727548 (Version 2)
Quarter: 2020Q2

REPORT INFORMATION
  Report Type: Spontaneous
  Country: FR (occurrence: FR)
  Receive Date: 20200430
  Receipt Date: 20200505
  Transmission Date: 20200714
  Serious: Yes (Other)
  Sender: FDA-Public Use
  Company Number: NVSC2020FR115090

PATIENT
  Age: 39 Year
  Sex: Female

DRUGS (11)
  1. BASILIXIMAB [Suspect]
     Active Substance: BASILIXIMAB
     Indication: IMMUNOSUPPRESSANT DRUG THERAPY
     Dosage: UNK
     Route: 065
  2. RITUXIMAB. [Suspect]
     Active Substance: RITUXIMAB
     Indication: FOCAL SEGMENTAL GLOMERULOSCLEROSIS
     Dosage: 375 MG/M2
     Route: 042
  3. CANDESARTAN. [Concomitant]
     Active Substance: CANDESARTAN
     Indication: RENIN-ANGIOTENSIN SYSTEM INHIBITION
     Dosage: 12
     Route: 065
  4. MYCOPHENOLATE MOFETIL. [Suspect]
     Active Substance: MYCOPHENOLATE MOFETIL
     Indication: IMMUNOSUPPRESSANT DRUG THERAPY
  5. CANDESARTAN. [Concomitant]
     Active Substance: CANDESARTAN
     Dosage: 8
     Route: 065
  6. ENVARSUS XR [Suspect]
     Active Substance: TACROLIMUS
     Indication: IMMUNOSUPPRESSANT DRUG THERAPY
  7. ENVARSUS XR [Suspect]
     Active Substance: TACROLIMUS
     Indication: RENAL TRANSPLANT
  8. PREDNISONE. [Suspect]
     Active Substance: PREDNISONE
     Indication: IMMUNOSUPPRESSANT DRUG THERAPY
  9. MYCOPHENOLATE MOFETIL. [Suspect]
     Active Substance: MYCOPHENOLATE MOFETIL
     Indication: FOCAL SEGMENTAL GLOMERULOSCLEROSIS
     Dosage: 1 G, QD
     Route: 065
  10. ENVARSUS XR [Suspect]
     Active Substance: TACROLIMUS
     Indication: FOCAL SEGMENTAL GLOMERULOSCLEROSIS
     Dosage: UNK
     Route: 065
  11. PREDNISONE. [Suspect]
     Active Substance: PREDNISONE
     Indication: FOCAL SEGMENTAL GLOMERULOSCLEROSIS
     Dosage: 5 MG, QD
     Route: 065

REACTIONS (4)
  - Herpes zoster disseminated [Recovered/Resolved]
  - Herpes zoster [Recovered/Resolved]
  - Cytomegalovirus infection reactivation [Unknown]
  - Focal segmental glomerulosclerosis [Unknown]
